FAERS Safety Report 5526315-1 (Version None)
Quarter: 2007Q4

REPORT INFORMATION
  Report Type: 
  Country: None (occurrence: None)
  Receive Date: 20071121
  Receipt Date: 20071121
  Transmission Date: 20080405
  Serious: No
  Sender: FDA-Public Use
  Company Number: None

PATIENT
  Age: 23 Year
  Sex: Male
  Weight: 65.7716 kg

DRUGS (6)
  1. TRAMADOL HCL [Suspect]
     Indication: GUN SHOT WOUND
     Dosage: 1-2 TABLES EVERY 4-6 HOURS PO
     Route: 048
     Dates: start: 20070817, end: 20070820
  2. TRAMADOL HCL [Suspect]
     Indication: HEAD INJURY
     Dosage: 1-2 TABLES EVERY 4-6 HOURS PO
     Route: 048
     Dates: start: 20070817, end: 20070820
  3. TRAMADOL HCL [Suspect]
     Indication: TOOTHACHE
     Dosage: 1-2 TABLES EVERY 4-6 HOURS PO
     Route: 048
     Dates: start: 20070817, end: 20070820
  4. TRAMADOL HCL [Suspect]
     Indication: GUN SHOT WOUND
     Dosage: 1-2 TABLES EVERY 4-6 HOURS PO
     Route: 048
     Dates: start: 20071120, end: 20071120
  5. TRAMADOL HCL [Suspect]
     Indication: HEAD INJURY
     Dosage: 1-2 TABLES EVERY 4-6 HOURS PO
     Route: 048
     Dates: start: 20071120, end: 20071120
  6. TRAMADOL HCL [Suspect]
     Indication: TOOTHACHE
     Dosage: 1-2 TABLES EVERY 4-6 HOURS PO
     Route: 048
     Dates: start: 20071120, end: 20071120

REACTIONS (5)
  - PAIN [None]
  - RASH PRURITIC [None]
  - SWELLING [None]
  - TOOTHACHE [None]
  - URTICARIA [None]
